FAERS Safety Report 6668574-8 (Version None)
Quarter: 2010Q2

REPORT INFORMATION
  Report Type: 
  Country: None (occurrence: None)
  Receive Date: 20100406
  Receipt Date: 20100401
  Transmission Date: 20101027
  Serious: Yes (Hospitalization)
  Sender: FDA-Public Use
  Company Number: US-RB-004405-10

PATIENT
  Age: 45 Year
  Sex: Male

DRUGS (1)
  1. SUBOXONE [Suspect]
     Dosage: DOSING DETAILS UNKNOWN
     Route: 060
     Dates: start: 20080101, end: 20080101

REACTIONS (4)
  - ABDOMINAL PAIN UPPER [None]
  - DRUG WITHDRAWAL SYNDROME [None]
  - GASTRIC ULCER [None]
  - URTICARIA [None]
